FAERS Safety Report 23286422 (Version 1)
Quarter: 2023Q4

REPORT INFORMATION
  Report Type: Spontaneous
  Country: US (occurrence: None)
  Receive Date: 20231211
  Receipt Date: 20231211
  Transmission Date: 20240109
  Serious: No
  Sender: FDA-Public Use
  Company Number: None

PATIENT
  Age: 48 Year
  Sex: Male

DRUGS (1)
  1. VTAMA [Suspect]
     Active Substance: TAPINAROF
     Indication: Pustular psoriasis
     Dosage: APPLY A THIN LAYER TO AFECTED AREA (S) ONCE DAILY AS DIRECTED.???

REACTIONS (5)
  - Swelling face [None]
  - Ear swelling [None]
  - Rash [None]
  - Rash [None]
  - Skin disorder [None]
